FAERS Safety Report 16151257 (Version 1)
Quarter: 2019Q2

REPORT INFORMATION
  Report Type: Spontaneous
  Country: JP (occurrence: JP)
  Receive Date: 20190402
  Receipt Date: 20190402
  Transmission Date: 20190711
  Serious: Yes (Death, Other)
  Sender: FDA-Public Use
  Company Number: JP-MYLANLABS-2018M1070970

PATIENT
  Age: 85 Year
  Sex: Male

DRUGS (1)
  1. EPIRUBICIN HYDROCHLORIDE INJ. 50MG ^NK^ [Suspect]
     Active Substance: EPIRUBICIN HYDROCHLORIDE
     Indication: HEPATOCELLULAR CARCINOMA
     Dosage: 150 MG, ONCE
     Route: 013
     Dates: start: 2014

REACTIONS (6)
  - Respiratory failure [Not Recovered/Not Resolved]
  - Sepsis [Not Recovered/Not Resolved]
  - Renal failure [Not Recovered/Not Resolved]
  - Duodenal ulcer [Unknown]
  - Pancreatitis necrotising [Fatal]
  - Oesophageal ulcer [Unknown]
